FAERS Safety Report 5214881-5 (Version None)
Quarter: 2007Q1

REPORT INFORMATION
  Report Type: 
  Country: None (occurrence: None)
  Receive Date: 20070122
  Receipt Date: 20070122
  Transmission Date: 20070707
  Serious: Yes (Death)
  Sender: FDA-Public Use
  Company Number: None

PATIENT
  Age: 18 Year
  Sex: Male
  Weight: 99.7913 kg

DRUGS (1)
  1. CYMBALTA [Suspect]
     Indication: DEPRESSION
     Dosage: 60 MG 1 A DAY PO
     Route: 048
     Dates: start: 20061205, end: 20061221

REACTIONS (2)
  - BURNS THIRD DEGREE [None]
  - COMPLETED SUICIDE [None]
